FAERS Safety Report 7381475-5 (Version None)
Quarter: 2011Q1

REPORT INFORMATION
  Report Type: 
  Country: None (occurrence: None)
  Receive Date: 20110329
  Receipt Date: 20110324
  Transmission Date: 20110831
  Serious: Yes (Other)
  Sender: FDA-Public Use
  Company Number: FI-PFIZER INC-2011065226

PATIENT
  Age: 90 Year
  Sex: Female

DRUGS (1)
  1. NEURONTIN [Suspect]
     Dosage: UNK

REACTIONS (2)
  - ORAL NEOPLASM [None]
  - MALIGNANT DYSPHAGIA [None]
